FAERS Safety Report 4701856-5 (Version None)
Quarter: 2005Q2

REPORT INFORMATION
  Report Type: 
  Country: None (occurrence: None)
  Receive Date: 20050627
  Receipt Date: 20050614
  Transmission Date: 20051028
  Serious: No
  Sender: FDA-Public Use
  Company Number: 214205

PATIENT
  Age: 17 Year
  Sex: Male
  Weight: 64.4 kg

DRUGS (4)
  1. NUTROPIN AQ [Suspect]
     Indication: GROWTH HORMONE DEFICIENCY
     Dosage: 2.6 MG, QD, SUBCUTANEOUS
     Route: 058
     Dates: start: 20040215, end: 20050328
  2. METADATE (METHYLPHENIDATE HYDROCHLORIDE) [Concomitant]
  3. AMITRIPTYLINE HCL [Concomitant]
  4. FLUOXETINE HCL [Concomitant]

REACTIONS (1)
  - SCOLIOSIS [None]
